FAERS Safety Report 23895554 (Version 1)
Quarter: 2024Q2

REPORT INFORMATION
  Report Type: Spontaneous
  Country: IN (occurrence: IN)
  Receive Date: 20240524
  Receipt Date: 20240524
  Transmission Date: 20240715
  Serious: Yes (Other)
  Sender: FDA-Public Use
  Company Number: IN-SUN PHARMACEUTICAL INDUSTRIES LTD-2024R1-447531

PATIENT
  Age: 62 Year
  Sex: Male

DRUGS (3)
  1. TICAGRELOR [Suspect]
     Active Substance: TICAGRELOR
     Indication: Product used for unknown indication
     Dosage: 180 MILLIGRAM
     Route: 065
  2. ATORVASTATIN [Suspect]
     Active Substance: ATORVASTATIN
     Indication: Product used for unknown indication
     Dosage: 40 MILLIGRAM
     Route: 065
  3. ASPIRIN [Suspect]
     Active Substance: ASPIRIN
     Indication: Product used for unknown indication
     Dosage: 325 MG
     Route: 065

REACTIONS (2)
  - Myocardial infarction [Unknown]
  - Ventricular fibrillation [Unknown]
